FAERS Safety Report 12342269 (Version 2)
Quarter: 2016Q2

REPORT INFORMATION
  Report Type: Spontaneous
  Country: US (occurrence: US)
  Receive Date: 20160506
  Receipt Date: 20160517
  Transmission Date: 20160815
  Serious: No
  Sender: FDA-Public Use
  Company Number: US-009507513-1604USA015419

PATIENT
  Sex: Female

DRUGS (1)
  1. GANIRELIX ACETATE. [Suspect]
     Active Substance: GANIRELIX ACETATE
     Indication: ASSISTED FERTILISATION
     Dosage: UNK

REACTIONS (2)
  - Injury associated with device [Unknown]
  - Product quality issue [Unknown]
